FAERS Safety Report 13178040 (Version 2)
Quarter: 2017Q4

REPORT INFORMATION
  Report Type: Report from Study
  Country: None (occurrence: CA)
  Receive Date: 20170202
  Receipt Date: 20171010
  Transmission Date: 20180320
  Serious: Yes (Other)
  Sender: FDA-Public Use
  Company Number: CA-ABBVIE-17K-028-1852482-00

PATIENT

DRUGS (4)
  1. HUMIRA [Suspect]
     Active Substance: ADALIMUMAB
     Indication: RHEUMATOID ARTHRITIS
     Route: 058
     Dates: end: 20160609
  2. PLAQUENIL [Concomitant]
     Active Substance: HYDROXYCHLOROQUINE SULFATE
     Indication: PRODUCT USED FOR UNKNOWN INDICATION
     Route: 048
     Dates: start: 20150601
  3. HUMIRA [Suspect]
     Active Substance: ADALIMUMAB
     Route: 058
  4. ENBREL [Concomitant]
     Active Substance: ETANERCEPT
     Indication: PRODUCT USED FOR UNKNOWN INDICATION
     Dosage: QS
     Route: 042
     Dates: start: 20160622, end: 20160922

REACTIONS (11)
  - Insomnia [Unknown]
  - Fatigue [Unknown]
  - General physical health deterioration [Unknown]
  - Abdominal pain [Unknown]
  - Gastritis [Unknown]
  - Ascites [Unknown]
  - Hepatic cirrhosis [Unknown]
  - Malnutrition [Unknown]
  - Mobility decreased [Unknown]
  - Spinal compression fracture [Unknown]
  - Drug ineffective [Unknown]
